FAERS Safety Report 5898389-X (Version None)
Quarter: 2008Q3

REPORT INFORMATION
  Report Type: 
  Country: None (occurrence: None)
  Receive Date: 20080925
  Receipt Date: 20071012
  Transmission Date: 20090109
  Serious: No
  Sender: FDA-Public Use
  Company Number: A0687575A

PATIENT
  Age: 40 Year
  Sex: Male

DRUGS (3)
  1. WELLBUTRIN XL [Suspect]
     Indication: DEPRESSION
     Dosage: 300MG PER DAY
     Route: 048
     Dates: start: 20070901, end: 20070927
  2. HUMALOG [Concomitant]
  3. VYTORIN [Concomitant]

REACTIONS (1)
  - TINNITUS [None]
